FAERS Safety Report 14802757 (Version 1)
Quarter: 2018Q2

REPORT INFORMATION
  Report Type: Spontaneous
  Country: AR (occurrence: AR)
  Receive Date: 20180424
  Receipt Date: 20180424
  Transmission Date: 20180711
  Serious: Yes (Other)
  Sender: FDA-Public Use
  Company Number: AR-PFIZER INC-2018164789

PATIENT
  Age: 69 Year
  Sex: Male

DRUGS (1)
  1. INLYTA [Suspect]
     Active Substance: AXITINIB
     Indication: RENAL CANCER
     Dosage: 10 MG, DAILY
     Dates: start: 20161216

REACTIONS (6)
  - Visual acuity reduced [Unknown]
  - Amnesia [Unknown]
  - Blindness unilateral [Unknown]
  - Blood pressure abnormal [Unknown]
  - Colitis [Unknown]
  - Weight decreased [Unknown]
